FAERS Safety Report 7415150-5 (Version None)
Quarter: 2011Q2

REPORT INFORMATION
  Report Type: 
  Country: None (occurrence: None)
  Receive Date: 20110414
  Receipt Date: 20110407
  Transmission Date: 20111010
  Serious: Yes (Death)
  Sender: FDA-Public Use
  Company Number: AT-ROCHE-770169

PATIENT

DRUGS (2)
  1. XELODA [Suspect]
     Indication: COLORECTAL CANCER
     Route: 065
  2. NOVALGIN [Concomitant]

REACTIONS (2)
  - PANCYTOPENIA [None]
  - HERPES VIRUS INFECTION [None]
